FAERS Safety Report 5013581-4 (Version None)
Quarter: 2006Q2

REPORT INFORMATION
  Report Type: 
  Country: None (occurrence: None)
  Receive Date: 20060525
  Receipt Date: 20060517
  Transmission Date: 20061013
  Serious: Yes (Other)
  Sender: FDA-Public Use
  Company Number: 2006065582

PATIENT
  Age: 40 Year
  Sex: Male
  Weight: 72.5755 kg

DRUGS (5)
  1. QUINAPRIL HCL [Suspect]
     Indication: DIABETES MELLITUS
  2. QUINAPRIL HCL [Suspect]
     Indication: HYPERTENSION
  3. CRESTOR [Concomitant]
  4. OMEGA-3 (OMEGA-3 TRIGLYCERIDES) [Concomitant]
  5. HUMALOG [Concomitant]

REACTIONS (5)
  - ANGER [None]
  - IRRITABILITY [None]
  - LEGAL PROBLEM [None]
  - MARITAL PROBLEM [None]
  - TREATMENT NONCOMPLIANCE [None]
